FAERS Safety Report 14936027 (Version 2)
Quarter: 2018Q2

REPORT INFORMATION
  Report Type: Spontaneous
  Country: CN (occurrence: CN)
  Receive Date: 20180524
  Receipt Date: 20180604
  Transmission Date: 20180711
  Serious: Yes (Death, Other)
  Sender: FDA-Public Use
  Company Number: CN-IMPAX LABORATORIES, INC-2018-IPXL-01736

PATIENT
  Age: 62 Year
  Sex: Female

DRUGS (10)
  1. TRIMETHOPRIM SULFAMETHOXAZOLE [Suspect]
     Active Substance: SULFAMETHOXAZOLE\TRIMETHOPRIM
     Indication: PULMONARY NOCARDIOSIS
     Dosage: 0.96 G, BID
     Route: 048
  2. METFORMIN [Concomitant]
     Active Substance: METFORMIN HYDROCHLORIDE
     Indication: DIABETES MELLITUS
     Dosage: UNK
     Route: 065
  3. DOXYCYCLINE HYCLATE DELAYED RELEASE [Suspect]
     Active Substance: DOXYCYCLINE HYCLATE
     Indication: PULMONARY NOCARDIOSIS
     Dosage: 0.1 G, BID
     Route: 048
  4. PENICILLIN [Suspect]
     Active Substance: PENICILLIN
     Dosage: 9.6 MILLION IU, BID
     Route: 042
  5. CEFEPIME HYDROCHLORIDE CMX [Suspect]
     Active Substance: CEFEPIME HYDROCHLORIDE
     Indication: PULMONARY NOCARDIOSIS
     Dosage: 1 G, BID
     Route: 065
  6. PENICILLIN [Suspect]
     Active Substance: PENICILLIN
     Indication: CUTANEOUS NOCARDIOSIS
     Dosage: 9.6 MILLION IU, EVERY 6HR
     Route: 042
  7. CEFEPIME HYDROCHLORIDE CMX [Suspect]
     Active Substance: CEFEPIME HYDROCHLORIDE
     Indication: CUTANEOUS NOCARDIOSIS
  8. DOXYCYCLINE HYCLATE DELAYED RELEASE [Suspect]
     Active Substance: DOXYCYCLINE HYCLATE
     Indication: CUTANEOUS NOCARDIOSIS
  9. TRIMETHOPRIM SULFAMETHOXAZOLE [Suspect]
     Active Substance: SULFAMETHOXAZOLE\TRIMETHOPRIM
     Indication: CUTANEOUS NOCARDIOSIS
     Dosage: 0.96 G, BID
     Route: 048
  10. PENICILLIN [Suspect]
     Active Substance: PENICILLIN
     Indication: PULMONARY NOCARDIOSIS
     Dosage: 9.6 MILLION IU, BID
     Route: 042

REACTIONS (4)
  - Death [Fatal]
  - Treatment failure [None]
  - Therapy cessation [None]
  - Treatment noncompliance [Unknown]
